FAERS Safety Report 21660902 (Version 1)
Quarter: 2022Q4

REPORT INFORMATION
  Report Type: Spontaneous
  Country: CA (occurrence: CA)
  Receive Date: 20221130
  Receipt Date: 20221130
  Transmission Date: 20230113
  Serious: Yes (Other)
  Sender: FDA-Public Use
  Company Number: CA-Merck KGaA-7093118

PATIENT
  Sex: Female

DRUGS (6)
  1. ORGALUTRAN [Suspect]
     Active Substance: GANIRELIX ACETATE
     Indication: Product used for unknown indication
     Dosage: 1 (UNIT NOT PROVIDED), QD
     Route: 058
     Dates: start: 20111028
  2. ORGALUTRAN [Suspect]
     Active Substance: GANIRELIX ACETATE
     Dosage: 1 DOSAGE FORM, 1 EVERY 1 DAYS
     Route: 058
  3. GONAL-F [Suspect]
     Active Substance: FOLLITROPIN
     Indication: Product used for unknown indication
     Dosage: 300 INTERNATIONAL UNIT, QD
     Route: 058
     Dates: start: 20111021
  4. GONAL-F [Suspect]
     Active Substance: FOLLITROPIN
     Dosage: DOSAGE FORM : POWDER FOR SOLUTION INTRAMUSCULAR, 1 DOSAGE FORM, 1 EVERY 1 DAYS
     Route: 058
  5. LUVERIS [Suspect]
     Active Substance: LUTROPIN ALFA
     Indication: Product used for unknown indication
     Dosage: 1 (UNITS NOT PROVIDED), QD
     Route: 058
     Dates: start: 20111021
  6. LUVERIS [Suspect]
     Active Substance: LUTROPIN ALFA
     Dosage: DOSAGE FORM : POWDER FOR SOLUTION INTRAMUSCULAR, 1 DOSAGE FORM, 1 EVERY 1 DAYS
     Route: 058

REACTIONS (2)
  - Ectopic pregnancy [Unknown]
  - Exposure during pregnancy [Unknown]
